FAERS Safety Report 16967690 (Version 2)
Quarter: 2019Q4

REPORT INFORMATION
  Report Type: Spontaneous
  Country: DE (occurrence: DE)
  Receive Date: 20191028
  Receipt Date: 20191119
  Transmission Date: 20200122
  Serious: Yes (Hospitalization)
  Sender: FDA-Public Use
  Company Number: DE-ELI_LILLY_AND_COMPANY-DE201910009219

PATIENT
  Age: 50 Year
  Sex: Female

DRUGS (2)
  1. TALTZ [Suspect]
     Active Substance: IXEKIZUMAB
     Indication: PSORIASIS
     Dosage: UNK, UNKNOWN
     Route: 058
     Dates: start: 201904
  2. MAXIM [DIENOGEST;ETHINYLESTRADIOL] [Concomitant]
     Active Substance: DIENOGEST\ETHINYL ESTRADIOL
     Indication: PRODUCT USED FOR UNKNOWN INDICATION
     Dosage: UNK, UNKNOWN
     Route: 065

REACTIONS (9)
  - Eyelid oedema [Recovered/Resolved]
  - Erythema [Recovered/Resolved]
  - Dermatitis contact [Recovered/Resolved]
  - Hypoaesthesia oral [Recovered/Resolved]
  - Angular cheilitis [Recovered/Resolved]
  - Photosensitivity reaction [Recovered/Resolved]
  - White blood cell count increased [Recovered/Resolved]
  - Perioral dermatitis [Recovered/Resolved]
  - Dyshidrotic eczema [Recovered/Resolved]

NARRATIVE: CASE EVENT DATE: 201909
